FAERS Safety Report 8485213-4 (Version None)
Quarter: 2012Q2

REPORT INFORMATION
  Report Type: 
  Country: None (occurrence: None)
  Receive Date: 20120627
  Receipt Date: 20120627
  Transmission Date: 20120825
  Serious: Yes (Disabling)
  Sender: FDA-Public Use
  Company Number: None

PATIENT
  Sex: Female
  Weight: 137.8 kg

DRUGS (1)
  1. AVELOX [Suspect]
     Indication: PNEUMONIA
     Dosage: 400MG DAILY ORAL
     Route: 048
     Dates: start: 20120119, end: 20120127

REACTIONS (3)
  - JOINT STIFFNESS [None]
  - ARTHRALGIA [None]
  - PNEUMONIA [None]
